FAERS Safety Report 11199811 (Version 3)
Quarter: 2015Q3

REPORT INFORMATION
  Report Type: Spontaneous
  Country: FR (occurrence: FR)
  Receive Date: 20150618
  Receipt Date: 20150820
  Transmission Date: 20151125
  Serious: Yes (Hospitalization, Other)
  Sender: FDA-Public Use
  Company Number: FR-GLAXOSMITHKLINE-FR2015GSK085387

PATIENT
  Age: 20 Month
  Sex: Male
  Weight: 13 kg

DRUGS (1)
  1. MALARONE [Suspect]
     Active Substance: ATOVAQUONE\PROGUANIL HYDROCHLORIDE
     Indication: MALARIA PROPHYLAXIS
     Dosage: 1 UNK, QD
     Route: 048
     Dates: start: 20150518, end: 20150616

REACTIONS (5)
  - Cough [Unknown]
  - Asthenia [Unknown]
  - Gastroenteritis bacterial [Recovering/Resolving]
  - Pyrexia [Not Recovered/Not Resolved]
  - Pyrexia [Recovered/Resolved]

NARRATIVE: CASE EVENT DATE: 201506
